FAERS Safety Report 9725374 (Version 1)
Quarter: 2013Q4

REPORT INFORMATION
  Report Type: Spontaneous
  Country: US (occurrence: None)
  Receive Date: 20131202
  Receipt Date: 20131202
  Transmission Date: 20140711
  Serious: Yes (Other)
  Sender: FDA-Public Use
  Company Number: None

PATIENT
  Age: 58 Year
  Sex: Male
  Weight: 92.08 kg

DRUGS (1)
  1. LISINOPRIL [Suspect]
     Indication: HYPERTENSION
     Route: 048
     Dates: start: 20130214, end: 20131023

REACTIONS (10)
  - Drug dose omission [None]
  - Incontinence [None]
  - Dizziness [None]
  - Vertigo [None]
  - Insomnia [None]
  - Depression [None]
  - Urinary tract inflammation [None]
  - Fatigue [None]
  - Prostatic disorder [None]
  - Inflammation [None]
